FAERS Safety Report 17765993 (Version 3)
Quarter: 2020Q3

REPORT INFORMATION
  Report Type: Spontaneous
  Country: US (occurrence: US)
  Receive Date: 20200511
  Receipt Date: 20200821
  Transmission Date: 20201102
  Serious: Yes (Death, Life-Threatening, Hospitalization, Other)
  Sender: FDA-Public Use
  Company Number: US-DRREDDYS-USA/USA/20/0122735

PATIENT
  Age: 21 Year
  Sex: Male

DRUGS (3)
  1. TACROLIMUS. [Suspect]
     Active Substance: TACROLIMUS
     Indication: IMMUNOSUPPRESSANT DRUG THERAPY
     Dosage: TACROLIMUS WITH DECREASED THERAPEUTIC GOALS
     Route: 065
  2. AMLODIPINE [Concomitant]
     Active Substance: AMLODIPINE BESYLATE
     Indication: PRODUCT USED FOR UNKNOWN INDICATION
  3. ATENOLOL. [Concomitant]
     Active Substance: ATENOLOL
     Indication: PRODUCT USED FOR UNKNOWN INDICATION

REACTIONS (8)
  - Metastases to abdominal cavity [Fatal]
  - Respiratory failure [Fatal]
  - Pleural effusion [Fatal]
  - Adenocarcinoma of colon [Fatal]
  - Hepatic lesion [Fatal]
  - Intestinal obstruction [Fatal]
  - Lymphadenopathy [Fatal]
  - Cardiac arrest [Fatal]
